FAERS Safety Report 7658758-4 (Version None)
Quarter: 2011Q3

REPORT INFORMATION
  Report Type: 
  Country: None (occurrence: None)
  Receive Date: 20110805
  Receipt Date: 20110802
  Transmission Date: 20111222
  Serious: Yes (Other)
  Sender: FDA-Public Use
  Company Number: ES-PFIZER INC-2011175720

PATIENT
  Age: 56 Year
  Sex: Female
  Weight: 95 kg

DRUGS (9)
  1. DAFLON [Concomitant]
  2. ESPIDIFEN [Concomitant]
  3. NOLOTIL /SPA/ [Concomitant]
  4. SEROXAT ^CIBA-GEIGY^ [Concomitant]
     Route: 048
  5. ZOLPIDEM [Concomitant]
  6. ALDACTONE [Concomitant]
  7. PANTOPRAZOLE [Concomitant]
     Route: 048
  8. SUTENT [Suspect]
     Indication: PARAGANGLION NEOPLASM
     Dosage: 50 MG, 1X/DAY
     Route: 048
     Dates: start: 20110315, end: 20110413
  9. NORVASC [Concomitant]
     Route: 048

REACTIONS (3)
  - DECREASED APPETITE [None]
  - HYPOTHYROIDISM [None]
  - DISORIENTATION [None]
